FAERS Safety Report 23734564 (Version 1)
Quarter: 2024Q2

REPORT INFORMATION
  Report Type: Spontaneous
  Country: US (occurrence: US)
  Receive Date: 20240412
  Receipt Date: 20240412
  Transmission Date: 20240716
  Serious: Yes (Other)
  Sender: FDA-Public Use
  Company Number: US-SANDOZ-SDZ2024US036968

PATIENT
  Sex: Female

DRUGS (1)
  1. HYRIMOZ [Suspect]
     Active Substance: ADALIMUMAB-ADAZ
     Indication: Crohn^s disease
     Dosage: 40 MG, ONCE EVERY TWO WEEKS
     Route: 058

REACTIONS (4)
  - Abscess intestinal [Unknown]
  - Therapy interrupted [Unknown]
  - Pain [Unknown]
  - Illness [Unknown]
